FAERS Safety Report 5208952-7 (Version None)
Quarter: 2007Q1

REPORT INFORMATION
  Report Type: 
  Country: None (occurrence: None)
  Receive Date: 20070116
  Receipt Date: 20070105
  Transmission Date: 20070707
  Serious: Yes (Other)
  Sender: FDA-Public Use
  Company Number: US-AMGEN-US205784

PATIENT
  Sex: Male
  Weight: 99.9 kg

DRUGS (6)
  1. VECTIBIX [Suspect]
     Indication: COLORECTAL CANCER
     Route: 042
     Dates: start: 20061115, end: 20061129
  2. XELODA [Concomitant]
     Route: 065
  3. POTASSIUM ACETATE [Concomitant]
     Route: 065
  4. COUMADIN [Concomitant]
     Route: 065
  5. PERCOCET [Concomitant]
     Route: 065
  6. FOLIC ACID [Concomitant]
     Route: 065

REACTIONS (2)
  - DERMATITIS ACNEIFORM [None]
  - DEVICE DISLOCATION [None]
